FAERS Safety Report 10237723 (Version 3)
Quarter: 2014Q4

REPORT INFORMATION
  Report Type: Spontaneous
  Country: GB (occurrence: GB)
  Receive Date: 20140616
  Receipt Date: 20141002
  Transmission Date: 20150528
  Serious: Yes (Hospitalization, Other)
  Sender: FDA-Public Use
  Company Number: GB-ACCORD-024191

PATIENT
  Age: 90 Year
  Sex: Female

DRUGS (3)
  1. SIMVASTATIN. [Suspect]
     Active Substance: SIMVASTATIN
     Indication: PRODUCT USED FOR UNKNOWN INDICATION
     Dosage: STOPPED 3 MONTHS AGO. ALSO RECEIVED UNKNOWN DOSE ON UNKNOWN DATE
     Route: 048
  2. FOLIC ACID. [Concomitant]
     Active Substance: FOLIC ACID
     Indication: PRODUCT USED FOR UNKNOWN INDICATION
     Dosage: 5 MG, UNK
     Route: 065
  3. CLARITHROMYCIN/CLARITHROMYCIN LACTOBIONATE [Interacting]
     Active Substance: CLARITHROMYCIN LACTOBIONATE
     Indication: PRODUCT USED FOR UNKNOWN INDICATION
     Dosage: RECEIVED 8/10 DOSES
     Route: 065
     Dates: start: 20130804

REACTIONS (9)
  - Mobility decreased [Recovered/Resolved]
  - Renal failure [Unknown]
  - Drug interaction [Unknown]
  - Chromaturia [Unknown]
  - Muscular weakness [Unknown]
  - Haemothorax [Unknown]
  - Off label use [Unknown]
  - Fall [Unknown]
  - Crepitations [Unknown]

NARRATIVE: CASE EVENT DATE: 20130808
